FAERS Safety Report 4459317-7 (Version None)
Quarter: 2004Q3

REPORT INFORMATION
  Report Type: 
  Country: None (occurrence: None)
  Receive Date: 20040923
  Receipt Date: 20040923
  Transmission Date: 20050211
  Serious: Yes (Hospitalization)
  Sender: FDA-Public Use
  Company Number: None

PATIENT
  Age: 72 Year
  Sex: Male
  Weight: 45 kg

DRUGS (16)
  1. WARFARIN  5 MG TAB [Suspect]
     Indication: HEART VALVE REPLACEMENT
     Dosage: 5 MG QD ORAL
     Route: 048
     Dates: start: 19980408, end: 20030904
  2. LEVAQUIN [Suspect]
     Indication: INFECTION
     Dosage: 500 MG QD ORAL
     Route: 048
     Dates: start: 20030902, end: 20030905
  3. PREDNISONE [Concomitant]
  4. RABEPRAZOLE SODIUM [Concomitant]
  5. PROMETHAZINE [Concomitant]
  6. NTG SL [Concomitant]
  7. METOPROLOL [Concomitant]
  8. LORAZEPAM [Concomitant]
  9. ISOSORBIDE [Concomitant]
  10. DIGOXIN [Concomitant]
  11. TYLENOL [Concomitant]
  12. SALMETEROL [Concomitant]
  13. ALBUTEROL/IPRATROPIUM INHALER [Concomitant]
  14. FLUNISOLIDE INHALER [Concomitant]
  15. LACTULOSE [Concomitant]
  16. MAGNESIUM OXIDE [Concomitant]

REACTIONS (7)
  - DYSPNOEA [None]
  - FAECAL OCCULT BLOOD POSITIVE [None]
  - HAEMATOCRIT DECREASED [None]
  - HAEMOGLOBIN DECREASED [None]
  - INTERNATIONAL NORMALISED RATIO INCREASED [None]
  - LEUKOCYTOSIS [None]
  - MELAENA [None]
